FAERS Safety Report 8228133-2 (Version None)
Quarter: 2012Q1

REPORT INFORMATION
  Report Type: 
  Country: None (occurrence: None)
  Receive Date: 20120322
  Receipt Date: 20111219
  Transmission Date: 20120608
  Serious: Yes (Other)
  Sender: FDA-Public Use
  Company Number: US-BRISTOL-MYERS SQUIBB COMPANY-16301723

PATIENT
  Age: 61 Year
  Sex: Female

DRUGS (1)
  1. ERBITUX [Suspect]
     Dates: start: 20111001

REACTIONS (4)
  - HYPOTENSION [None]
  - HYPERTENSION [None]
  - DEHYDRATION [None]
  - DIARRHOEA [None]
